FAERS Safety Report 19380463 (Version 1)
Quarter: 2021Q2

REPORT INFORMATION
  Report Type: Spontaneous
  Country: GB (occurrence: GB)
  Receive Date: 20210607
  Receipt Date: 20210607
  Transmission Date: 20210717
  Serious: Yes (Life-Threatening)
  Sender: FDA-Public Use
  Company Number: GB-JNJFOC-20210608660

PATIENT
  Age: 45 Year
  Sex: Male

DRUGS (4)
  1. TREVICTA [Suspect]
     Active Substance: PALIPERIDONE PALMITATE
  2. TREVICTA [Suspect]
     Active Substance: PALIPERIDONE PALMITATE
  3. TREVICTA [Suspect]
     Active Substance: PALIPERIDONE PALMITATE
     Indication: SCHIZOAFFECTIVE DISORDER
     Route: 030
     Dates: start: 20171114, end: 20200216
  4. OLANZAPINE. [Concomitant]
     Active Substance: OLANZAPINE
     Indication: ILL-DEFINED DISORDER

REACTIONS (3)
  - Product use in unapproved indication [Unknown]
  - Suicidal ideation [Recovered/Resolved]
  - Off label use [Unknown]

NARRATIVE: CASE EVENT DATE: 20191204
